FAERS Safety Report 6824454-6 (Version None)
Quarter: 2010Q3

REPORT INFORMATION
  Report Type: 
  Country: None (occurrence: None)
  Receive Date: 20100708
  Receipt Date: 20061025
  Transmission Date: 20110219
  Serious: Yes (Other)
  Sender: FDA-Public Use
  Company Number: US-PFIZER INC-2006131359

PATIENT
  Sex: Female
  Weight: 102.06 kg

DRUGS (6)
  1. CHANTIX [Suspect]
     Indication: SMOKING CESSATION THERAPY
     Dates: start: 20061020, end: 20061025
  2. TOPROL-XL [Concomitant]
  3. VALSARTAN [Concomitant]
  4. MONTELUKAST [Concomitant]
  5. SPIRONOLACTONE [Concomitant]
  6. CORTICOSTEROIDS [Concomitant]
     Indication: WHEEZING

REACTIONS (8)
  - BLOOD PRESSURE INCREASED [None]
  - DECREASED APPETITE [None]
  - DISORIENTATION [None]
  - FEELING ABNORMAL [None]
  - FEELING JITTERY [None]
  - HEADACHE [None]
  - HEART RATE INCREASED [None]
  - RENAL PAIN [None]
